FAERS Safety Report 24835180 (Version 2)
Quarter: 2025Q1

REPORT INFORMATION
  Report Type: Report from Study
  Country: CA (occurrence: CA)
  Receive Date: 20250113
  Receipt Date: 20250211
  Transmission Date: 20250408
  Serious: Yes (Other)
  Sender: TAKEDA
  Company Number: CA-TAKEDA-2025TUS002627

PATIENT
  Age: 45 Year
  Sex: Male

DRUGS (11)
  1. VEDOLIZUMAB [Suspect]
     Active Substance: VEDOLIZUMAB
     Indication: Colitis ulcerative
  2. VEDOLIZUMAB [Suspect]
     Active Substance: VEDOLIZUMAB
     Dosage: 300 MILLIGRAM, Q4WEEKS
     Dates: start: 20171102
  3. VEDOLIZUMAB [Suspect]
     Active Substance: VEDOLIZUMAB
     Dosage: 300 MILLIGRAM, Q4WEEKS
  4. PREDNISONE [Concomitant]
     Active Substance: PREDNISONE
  5. INFUFER [Concomitant]
     Dosage: UNK UNK, MONTHLY
  6. METRONIDAZOLE [Concomitant]
     Active Substance: METRONIDAZOLE
  7. TEGRETOL [Concomitant]
     Active Substance: CARBAMAZEPINE
  8. RIVOTRIL [Concomitant]
     Active Substance: CLONAZEPAM
  9. ATIVAN [Concomitant]
     Active Substance: LORAZEPAM
  10. ZOCOR [Concomitant]
     Active Substance: SIMVASTATIN
  11. EZETIMIBE [Concomitant]
     Active Substance: EZETIMIBE

REACTIONS (5)
  - Bipolar disorder [Recovering/Resolving]
  - Fear of death [Not Recovered/Not Resolved]
  - Anxiety [Not Recovered/Not Resolved]
  - Off label use [Unknown]
  - Palpitations [Recovering/Resolving]

NARRATIVE: CASE EVENT DATE: 20171102
